FAERS Safety Report 5486502-8 (Version None)
Quarter: 2007Q4

REPORT INFORMATION
  Report Type: 
  Country: None (occurrence: None)
  Receive Date: 20071012
  Receipt Date: 20070925
  Transmission Date: 20080405
  Serious: Yes (Other)
  Sender: FDA-Public Use
  Company Number: 2007SP020318

PATIENT
  Sex: Female

DRUGS (4)
  1. CLARITIN-D 24 HOUR [Suspect]
     Indication: MIDDLE EAR EFFUSION
     Dosage: PO
     Route: 048
  2. CHEMOTHERAPEUTICS NOS [Suspect]
     Indication: NEOPLASM MALIGNANT
  3. TRIAMTERENE [Concomitant]
  4. HYDROCHLOROTHIAZIDE [Concomitant]

REACTIONS (3)
  - HYPERHIDROSIS [None]
  - HYPOTHERMIA [None]
  - WHITE BLOOD CELL COUNT DECREASED [None]
